FAERS Safety Report 7476364-1 (Version None)
Quarter: 2011Q2

REPORT INFORMATION
  Report Type: 
  Country: None (occurrence: None)
  Receive Date: 20110512
  Receipt Date: 20110501
  Transmission Date: 20111010
  Serious: Yes (Other)
  Sender: FDA-Public Use
  Company Number: A0925215A

PATIENT
  Sex: Female

DRUGS (3)
  1. ADVAIR DISKUS 100/50 [Suspect]
     Dosage: 2PUFF TWICE PER DAY
     Route: 055
  2. FLOVENT [Suspect]
     Dosage: 2PUFF TWICE PER DAY
     Route: 065
  3. VENTOLIN [Suspect]
     Dosage: 2PUFF TWICE PER DAY
     Route: 065

REACTIONS (14)
  - PNEUMONITIS [None]
  - MALAISE [None]
  - WEIGHT DECREASED [None]
  - NASAL CONGESTION [None]
  - ILL-DEFINED DISORDER [None]
  - FATIGUE [None]
  - SINUSITIS [None]
  - AGITATION [None]
  - INFLUENZA [None]
  - INCONTINENCE [None]
  - INSOMNIA [None]
  - HYPERAESTHESIA [None]
  - COUGH [None]
  - MYALGIA [None]
